FAERS Safety Report 12184325 (Version 1)
Quarter: 2016Q1

REPORT INFORMATION
  Report Type: Spontaneous
  Country: US (occurrence: US)
  Receive Date: 20160316
  Receipt Date: 20160316
  Transmission Date: 20160526
  Serious: Yes (Death)
  Sender: FDA-Public Use
  Company Number: US-SA-2016SA052916

PATIENT
  Sex: Female

DRUGS (6)
  1. 5 FU [Suspect]
     Active Substance: FLUOROURACIL
     Route: 065
  2. BEVACIZUMAB [Suspect]
     Active Substance: BEVACIZUMAB
     Route: 065
  3. MORPHINE [Suspect]
     Active Substance: MORPHINE
     Route: 065
  4. CETUXIMAB [Suspect]
     Active Substance: CETUXIMAB
     Route: 065
  5. IRINOTECAN [Suspect]
     Active Substance: IRINOTECAN
     Route: 065
  6. ELOXATIN [Suspect]
     Active Substance: OXALIPLATIN
     Route: 065

REACTIONS (6)
  - Malaise [Unknown]
  - Neoplasm malignant [Fatal]
  - Fear [Unknown]
  - Memory impairment [Unknown]
  - Speech disorder [Unknown]
  - Confusional state [Unknown]
